FAERS Safety Report 8424697-4 (Version None)
Quarter: 2012Q2

REPORT INFORMATION
  Report Type: 
  Country: None (occurrence: None)
  Receive Date: 20120611
  Receipt Date: 20120605
  Transmission Date: 20120825
  Serious: Yes (Hospitalization)
  Sender: FDA-Public Use
  Company Number: AU-BIOGENIDEC-2012BI019852

PATIENT
  Age: 54 Year
  Sex: Female

DRUGS (3)
  1. PANADOL OSTEO [Concomitant]
     Indication: PAIN PROPHYLAXIS
  2. AVONEX [Suspect]
     Indication: MULTIPLE SCLEROSIS
     Route: 030
     Dates: start: 20120511
  3. ACETAMINOPHEN [Concomitant]
     Indication: PAIN PROPHYLAXIS

REACTIONS (4)
  - URINARY INCONTINENCE [None]
  - VOMITING [None]
  - FAECAL INCONTINENCE [None]
  - INFLUENZA LIKE ILLNESS [None]
